FAERS Safety Report 22276740 (Version 3)
Quarter: 2023Q2

REPORT INFORMATION
  Report Type: Report from Study
  Country: US (occurrence: US)
  Receive Date: 20230503
  Receipt Date: 20230630
  Transmission Date: 20230722
  Serious: Yes (Hospitalization, Other)
  Sender: FDA-Public Use
  Company Number: US-JAZZ PHARMACEUTICALS-2022-US-038714

PATIENT
  Age: 21 Year
  Sex: Female

DRUGS (4)
  1. EPIDIOLEX [Suspect]
     Active Substance: CANNABIDIOL
     Indication: Epilepsy
     Dosage: 2.5 MILLILITER,BID
     Route: 048
     Dates: start: 20221111
  2. EPIDIOLEX [Suspect]
     Active Substance: CANNABIDIOL
     Indication: Focal dyscognitive seizures
     Dosage: 4.9 MILLILITER, BID
     Route: 048
     Dates: start: 202211
  3. EPIDIOLEX [Suspect]
     Active Substance: CANNABIDIOL
     Indication: Status epilepticus
     Dosage: 4.9 MILLILITER, BID
     Route: 048
     Dates: start: 202302
  4. PREGABALIN [Concomitant]
     Active Substance: PREGABALIN
     Indication: Product used for unknown indication
     Dosage: UNK

REACTIONS (19)
  - Suicidal ideation [Unknown]
  - Seizure [Unknown]
  - Constipation [Unknown]
  - Memory impairment [Unknown]
  - Libido decreased [Unknown]
  - Dry mouth [Unknown]
  - Peripheral coldness [Unknown]
  - Speech disorder [Unknown]
  - Somnolence [Unknown]
  - Abdominal pain upper [Unknown]
  - Nausea [Unknown]
  - Asthenia [Unknown]
  - Staring [Unknown]
  - Drooling [Unknown]
  - Dysarthria [Unknown]
  - Fatigue [Unknown]
  - Decreased appetite [Unknown]
  - Depression [Unknown]
  - Off label use [Unknown]

NARRATIVE: CASE EVENT DATE: 20221201
